FAERS Safety Report 7170447-1 (Version None)
Quarter: 2010Q4

REPORT INFORMATION
  Report Type: 
  Country: None (occurrence: None)
  Receive Date: 20101214
  Receipt Date: 20101214
  Transmission Date: 20110411
  Serious: Yes (Hospitalization, Other)
  Sender: FDA-Public Use
  Company Number: None

PATIENT
  Age: 56 Year
  Sex: Female
  Weight: 53.5244 kg

DRUGS (1)
  1. BONIVA [Suspect]
     Indication: OSTEOPENIA
     Dosage: 1 PILL MONTHLY PO
     Route: 048
     Dates: start: 20101107, end: 20101107

REACTIONS (7)
  - BONE PAIN [None]
  - CHILLS [None]
  - CONVULSION [None]
  - MALAISE [None]
  - PYREXIA [None]
  - TREMOR [None]
  - VOMITING [None]
